FAERS Safety Report 9826367 (Version 1)
Quarter: 2014Q1

REPORT INFORMATION
  Report Type: Spontaneous
  Country: US (occurrence: US)
  Receive Date: 20140117
  Receipt Date: 20140117
  Transmission Date: 20141002
  Serious: No
  Sender: FDA-Public Use
  Company Number: US-BIOGENIDEC-2014BI001006

PATIENT
  Age: 37 Year
  Sex: Female

DRUGS (1)
  1. TECFIDERA [Suspect]
     Indication: PRODUCT USED FOR UNKNOWN INDICATION
     Dates: start: 20130819

REACTIONS (7)
  - Adverse reaction [Unknown]
  - Prescribed underdose [Unknown]
  - Fluid intake reduced [Unknown]
  - General symptom [Unknown]
  - Aphagia [Unknown]
  - Rash [Unknown]
  - Diarrhoea [Unknown]
